FAERS Safety Report 19737337 (Version 2)
Quarter: 2021Q3

REPORT INFORMATION
  Report Type: Report from Study
  Country: CA (occurrence: CA)
  Receive Date: 20210823
  Receipt Date: 20210902
  Transmission Date: 20211014
  Serious: Yes (Hospitalization, Other)
  Sender: FDA-Public Use
  Company Number: CA-JNJFOC-20200331617

PATIENT
  Age: 43 Year
  Sex: Female
  Weight: 95.6 kg

DRUGS (4)
  1. REMICADE [Suspect]
     Active Substance: INFLIXIMAB
     Indication: COLITIS ULCERATIVE
     Dosage: PATIENT RECEIVED 99TH INFUSION OF INFLIXIMAB ON 04?OCT?2010 WITH A DOSE OF 800 MG?LAST INFUSION RECE
     Route: 042
     Dates: start: 20101004, end: 20210727
  2. VITAMIN C [Concomitant]
     Active Substance: ASCORBIC ACID
     Indication: PRODUCT USED FOR UNKNOWN INDICATION
     Route: 065
  3. MULTI VITAMIN                      /08408501/ [Concomitant]
     Active Substance: VITAMINS
     Indication: PRODUCT USED FOR UNKNOWN INDICATION
     Route: 065
  4. REMICADE [Suspect]
     Active Substance: INFLIXIMAB
     Indication: CROHN^S DISEASE

REACTIONS (21)
  - Fall [Unknown]
  - Muscle injury [Unknown]
  - Mastitis [Unknown]
  - Anxiety [Unknown]
  - General physical health deterioration [Recovering/Resolving]
  - Skin cancer [Unknown]
  - Stress [Unknown]
  - Respiratory tract congestion [Unknown]
  - Back pain [Unknown]
  - Erythema [Unknown]
  - Precancerous skin lesion [Unknown]
  - Thyroid disorder [Unknown]
  - Dehydration [Unknown]
  - Post procedural infection [Unknown]
  - Pollakiuria [Unknown]
  - Colitis ulcerative [Unknown]
  - Gastrooesophageal reflux disease [Unknown]
  - Viral upper respiratory tract infection [Recovering/Resolving]
  - Sinusitis [Not Recovered/Not Resolved]
  - Dysuria [Unknown]
  - Breast cyst [Unknown]

NARRATIVE: CASE EVENT DATE: 202002
